FAERS Safety Report 7957798-5 (Version None)
Quarter: 2011Q4

REPORT INFORMATION
  Report Type: 
  Country: None (occurrence: None)
  Receive Date: 20111205
  Receipt Date: 20111129
  Transmission Date: 20120403
  Serious: Yes (Other)
  Sender: FDA-Public Use
  Company Number: BR-JNJFOC-20111200258

PATIENT
  Age: 55 Year
  Sex: Female
  Weight: 68 kg

DRUGS (5)
  1. CARBAMAZEPINA [Concomitant]
     Indication: PRODUCT USED FOR UNKNOWN INDICATION
     Route: 065
  2. CARBOLITIUM [Concomitant]
     Indication: BIPOLAR DISORDER
     Route: 065
  3. NICORETTE [Suspect]
     Route: 062
  4. NICORETTE [Suspect]
     Indication: SMOKING CESSATION THERAPY
     Dosage: DIVIDED THE PATCH INTO FOUR PIECES
     Route: 062
     Dates: start: 20090101, end: 20090101
  5. NICORETTE [Suspect]
     Indication: DEPENDENCE
     Dosage: FOR THREE YEARS
     Route: 048
     Dates: start: 20090101

REACTIONS (4)
  - DEPENDENCE [None]
  - INTENTIONAL DRUG MISUSE [None]
  - APPLICATION SITE PRURITUS [None]
  - APPLICATION SITE PAPULES [None]
